FAERS Safety Report 4596807-0 (Version None)
Quarter: 2005Q1

REPORT INFORMATION
  Report Type: 
  Country: None (occurrence: None)
  Receive Date: 20050228
  Receipt Date: 20050210
  Transmission Date: 20050727
  Serious: Yes (Hospitalization, Disabling)
  Sender: FDA-Public Use
  Company Number: DSA_25975_2005

PATIENT
  Age: 84 Year
  Sex: Male

DRUGS (6)
  1. ENALAPRIL MALEATE [Suspect]
     Indication: HYPERTENSION
     Dosage: 10 MG BID PO
     Route: 048
     Dates: end: 20050117
  2. ALBUTEROL [Concomitant]
  3. ATENOLOL [Concomitant]
  4. BECLOMETHASONE DIPROPIONATE [Concomitant]
  5. NICORANDIL [Concomitant]
  6. NITROGLYCERIN [Concomitant]

REACTIONS (1)
  - PEMPHIGOID [None]
